FAERS Safety Report 19231095 (Version 3)
Quarter: 2021Q2

REPORT INFORMATION
  Report Type: Spontaneous
  Country: JP (occurrence: JP)
  Receive Date: 20210507
  Receipt Date: 20210611
  Transmission Date: 20210717
  Serious: Yes (Hospitalization)
  Sender: FDA-Public Use
  Company Number: JP-ELI_LILLY_AND_COMPANY-JP202104013683

PATIENT
  Age: 60 Year
  Sex: Female

DRUGS (4)
  1. PREDNISOLONE. [Suspect]
     Active Substance: PREDNISOLONE
     Indication: RHEUMATOID ARTHRITIS
     Dosage: 7 MG, DAILY
     Route: 048
     Dates: start: 19910216
  2. OLUMIANT [Suspect]
     Active Substance: BARICITINIB
     Indication: RHEUMATOID ARTHRITIS
     Dosage: 4 MG, DAILY
     Route: 048
     Dates: start: 20200919, end: 20210427
  3. TACROLIMUS. [Suspect]
     Active Substance: TACROLIMUS
     Indication: RHEUMATOID ARTHRITIS
     Dosage: 3 MG, DAILY
     Route: 048
     Dates: start: 20010114
  4. PICIBANIL [Concomitant]
     Active Substance: OK-432

REACTIONS (3)
  - Pneumonia bacterial [Recovering/Resolving]
  - Postoperative wound infection [Recovering/Resolving]
  - Epigastric discomfort [Unknown]

NARRATIVE: CASE EVENT DATE: 20210427
